FAERS Safety Report 7946325-4 (Version None)
Quarter: 2011Q4

REPORT INFORMATION
  Report Type: 
  Country: None (occurrence: None)
  Receive Date: 20111125
  Receipt Date: 20111110
  Transmission Date: 20120403
  Serious: Yes (Other)
  Sender: FDA-Public Use
  Company Number: 1000025604

PATIENT
  Age: 4 Year
  Sex: Female

DRUGS (1)
  1. CITALOPRAM HYDROBROMIDE [Suspect]
     Dosage: (10 MG, ONCE), ORAL
     Route: 048
     Dates: start: 20111101, end: 20111101

REACTIONS (1)
  - ACCIDENTAL DRUG INTAKE BY CHILD [None]
